FAERS Safety Report 4639556-2 (Version None)
Quarter: 2005Q1

REPORT INFORMATION
  Report Type: 
  Country: None (occurrence: None)
  Receive Date: 20050328
  Receipt Date: 20050210
  Transmission Date: 20050727
  Serious: No
  Sender: FDA-Public Use
  Company Number: USA050290507

PATIENT
  Age: 50 Year
  Sex: Female
  Weight: 103 kg

DRUGS (4)
  1. STRATTERA [Suspect]
     Indication: ATTENTION DEFICIT/HYPERACTIVITY DISORDER
     Dosage: 40 MG/2 DAY
     Dates: start: 20030701
  2. INSULIN HUMULIN 50/50 [Concomitant]
  3. LEXAPRO [Concomitant]
  4. ESTROGENS CONJUGATED [Concomitant]

REACTIONS (1)
  - DRUG SCREEN POSITIVE [None]
